FAERS Safety Report 13191397 (Version 2)
Quarter: 2017Q1

REPORT INFORMATION
  Report Type: Spontaneous
  Country: FR (occurrence: FR)
  Receive Date: 20170207
  Receipt Date: 20170207
  Transmission Date: 20170428
  Serious: Yes (Hospitalization)
  Sender: FDA-Public Use
  Company Number: FR-ASTRAZENECA-2017SE13194

PATIENT
  Age: 54 Year
  Sex: Female

DRUGS (6)
  1. AMIKACINE [Suspect]
     Active Substance: AMIKACIN
     Indication: INFECTION
     Dosage: IN SINGLE DOSE
     Route: 065
     Dates: start: 20161221
  2. SANDOSTATIN [Suspect]
     Active Substance: OCTREOTIDE ACETATE
     Route: 065
     Dates: start: 20161221
  3. SKENAN [Concomitant]
     Active Substance: MORPHINE SULFATE
  4. ACTIQ [Concomitant]
     Active Substance: FENTANYL CITRATE
  5. INEXIUM [Suspect]
     Active Substance: ESOMEPRAZOLE
     Indication: PROPHYLAXIS
     Route: 048
     Dates: start: 20161221
  6. TAZOCILLINE [Suspect]
     Active Substance: PIPERACILLIN SODIUM\TAZOBACTAM SODIUM
     Indication: INFECTION
     Route: 065
     Dates: start: 20161219

REACTIONS (1)
  - Pancreatitis acute [Recovered/Resolved]

NARRATIVE: CASE EVENT DATE: 20161222
